FAERS Safety Report 6520822-0 (Version None)
Quarter: 2009Q4

REPORT INFORMATION
  Report Type: 
  Country: None (occurrence: None)
  Receive Date: 20091229
  Receipt Date: 20091222
  Transmission Date: 20100525
  Serious: Yes (Death, Congenital Anomaly)
  Sender: FDA-Public Use
  Company Number: BG-ABBOTT-09P-022-0608741-00

PATIENT

DRUGS (1)
  1. DEPAKIN DEPOT [Suspect]
     Indication: DRUG EXPOSURE DURING PREGNANCY
     Route: 064

REACTIONS (7)
  - APGAR SCORE LOW [None]
  - ARACHNOID CYST [None]
  - CONGENITAL HYDROCEPHALUS [None]
  - DRUG EXPOSURE DURING PREGNANCY [None]
  - FOETAL MALFORMATION [None]
  - LISSENCEPHALY [None]
  - POLYDACTYLY [None]
